FAERS Safety Report 6692427-2 (Version None)
Quarter: 2010Q2

REPORT INFORMATION
  Report Type: 
  Country: None (occurrence: None)
  Receive Date: 20100422
  Receipt Date: 20100409
  Transmission Date: 20101027
  Serious: No
  Sender: FDA-Public Use
  Company Number: US-B.I. PHARMACEUTICALS,INC./RIDGEFIELD-2010-BP-04141BP

PATIENT
  Age: 15 Year
  Sex: Male

DRUGS (1)
  1. ZANTAC 75 [Suspect]
     Dosage: 150 MG
     Route: 048

REACTIONS (1)
  - DRUG INEFFECTIVE [None]
